FAERS Safety Report 6522140-3 (Version None)
Quarter: 2009Q4

REPORT INFORMATION
  Report Type: 
  Country: None (occurrence: None)
  Receive Date: 20091229
  Receipt Date: 20091229
  Transmission Date: 20100525
  Serious: Yes (Life-Threatening, Other)
  Sender: FDA-Public Use
  Company Number: None

PATIENT
  Age: 50 Year
  Sex: Female
  Weight: 77.1115 kg

DRUGS (2)
  1. FENTANYL-100 [Suspect]
     Indication: BONE PAIN
     Dosage: 1 PATCH 50MGC/HR 2 DAYS TRANSDERMAL
     Route: 062
     Dates: start: 20091210, end: 20091228
  2. FENTANYL-100 [Suspect]
     Indication: SPINAL OPERATION
     Dosage: 1 PATCH 50MGC/HR 2 DAYS TRANSDERMAL
     Route: 062
     Dates: start: 20091210, end: 20091228

REACTIONS (10)
  - APPLICATION SITE PAIN [None]
  - APPLICATION SITE RASH [None]
  - DEVICE LEAKAGE [None]
  - DIZZINESS [None]
  - HYPOAESTHESIA [None]
  - MUSCLE SPASMS [None]
  - PARAESTHESIA [None]
  - PRESYNCOPE [None]
  - RASH [None]
  - WHEEZING [None]
